FAERS Safety Report 20601000 (Version 1)
Quarter: 2022Q1

REPORT INFORMATION
  Report Type: Spontaneous
  Country: US (occurrence: US)
  Receive Date: 20220316
  Receipt Date: 20220316
  Transmission Date: 20220424
  Serious: No
  Sender: FDA-Public Use
  Company Number: US-ASTELLAS-2021US042858

PATIENT
  Sex: Male

DRUGS (2)
  1. ISAVUCONAZOLE [Suspect]
     Active Substance: ISAVUCONAZOLE
     Indication: Fusarium infection
     Dosage: UNK UNK, UNKNOWN FREQ.
     Route: 065
  2. AMBISOME [Concomitant]
     Active Substance: AMPHOTERICIN B
     Indication: Localised infection
     Dosage: UNK UNK, EVERY 48 HOURS
     Route: 042

REACTIONS (2)
  - Product use in unapproved indication [Unknown]
  - Off label use [Unknown]
